FAERS Safety Report 8578353-2 (Version None)
Quarter: 2012Q3

REPORT INFORMATION
  Report Type: 
  Country: None (occurrence: None)
  Receive Date: 20120808
  Receipt Date: 20120730
  Transmission Date: 20120928
  Serious: Yes (Other)
  Sender: FDA-Public Use
  Company Number: US-PURDUE-USA-2012-0082158

PATIENT
  Age: 50 Year
  Sex: Male
  Weight: 81 kg

DRUGS (14)
  1. OXYCONTIN [Suspect]
     Dosage: 60 MG, Q12H
  2. OXYCONTIN [Suspect]
     Dosage: 80 MG, TID
  3. ROXICODONE [Suspect]
     Indication: INTERVERTEBRAL DISC DEGENERATION
     Dosage: UNK UNK, SEE TEXT
  4. LEXAPRO [Concomitant]
     Dosage: UNK, SEE TEXT
  5. LYRICA [Concomitant]
     Indication: PRODUCT USED FOR UNKNOWN INDICATION
  6. OXYCODONE HCL [Suspect]
     Indication: INTERVERTEBRAL DISC DEGENERATION
     Dosage: 30 MG, SEE TEXT
     Route: 048
  7. LEXAPRO [Concomitant]
     Indication: DEPRESSION
     Dosage: 20 MG, QD PRN
     Route: 048
  8. PROZAC [Concomitant]
     Indication: PRODUCT USED FOR UNKNOWN INDICATION
  9. KLONOPIN [Concomitant]
     Indication: PRODUCT USED FOR UNKNOWN INDICATION
  10. REQUIP [Concomitant]
     Indication: PRODUCT USED FOR UNKNOWN INDICATION
  11. OXYCONTIN [Suspect]
     Indication: INTERVERTEBRAL DISC DEGENERATION
     Dosage: 60 MG, TID
     Route: 048
  12. DEPAKOTE ER [Concomitant]
     Indication: MOOD SWINGS
     Dosage: 250 MG, BID
     Route: 048
  13. SOMA [Suspect]
     Indication: INTERVERTEBRAL DISC DEGENERATION
  14. OXYCONTIN [Suspect]
     Indication: BACK PAIN
     Dosage: 40 MG, Q6H
     Route: 048

REACTIONS (24)
  - SUBSTANCE ABUSE [None]
  - WEIGHT DECREASED [None]
  - MAJOR DEPRESSION [None]
  - AGGRESSION [None]
  - UNEVALUABLE EVENT [None]
  - INADEQUATE ANALGESIA [None]
  - DRUG WITHDRAWAL SYNDROME [None]
  - NECK SURGERY [None]
  - SPINAL FUSION SURGERY [None]
  - LUMBAR RADICULOPATHY [None]
  - SELF INJURIOUS BEHAVIOUR [None]
  - EYE IRRITATION [None]
  - NECK PAIN [None]
  - PARANOIA [None]
  - TERMINAL INSOMNIA [None]
  - PAIN [None]
  - PAIN IN EXTREMITY [None]
  - MUSCULOSKELETAL PAIN [None]
  - FATIGUE [None]
  - COLD SWEAT [None]
  - DRUG DEPENDENCE [None]
  - CERVICOBRACHIAL SYNDROME [None]
  - HALLUCINATION, AUDITORY [None]
  - TREMOR [None]
